FAERS Safety Report 22853577 (Version 3)
Quarter: 2023Q4

REPORT INFORMATION
  Report Type: Spontaneous
  Country: US (occurrence: US)
  Receive Date: 20230823
  Receipt Date: 20231009
  Transmission Date: 20240110
  Serious: No
  Sender: FDA-Public Use
  Company Number: US-SA-SAC20230818001363

PATIENT
  Age: 46 Year
  Sex: Female

DRUGS (2)
  1. DUPIXENT [Suspect]
     Active Substance: DUPILUMAB
     Indication: Asthma
     Dosage: 300 MG, QOW
     Route: 058
     Dates: start: 202306
  2. XOLAIR [Concomitant]
     Active Substance: OMALIZUMAB
     Dosage: UNK

REACTIONS (9)
  - Nasal polyps [Unknown]
  - Skin discolouration [Unknown]
  - Rash macular [Unknown]
  - Rash pruritic [Recovering/Resolving]
  - Skin disorder [Unknown]
  - Condition aggravated [Unknown]
  - Hypersensitivity [Unknown]
  - Pain in extremity [Unknown]
  - Asthma [Unknown]

NARRATIVE: CASE EVENT DATE: 20230101
